FAERS Safety Report 18071877 (Version 2)
Quarter: 2021Q2

REPORT INFORMATION
  Report Type: Spontaneous
  Country: US (occurrence: US)
  Receive Date: 20200727
  Receipt Date: 20210422
  Transmission Date: 20210717
  Serious: Yes (Other)
  Sender: FDA-Public Use
  Company Number: US-AMNEAL PHARMACEUTICALS-2020-AMRX-01721

PATIENT
  Age: 20 Year
  Sex: Female

DRUGS (1)
  1. ISOTRETINOIN. [Suspect]
     Active Substance: ISOTRETINOIN
     Indication: PRODUCT USED FOR UNKNOWN INDICATION
     Dosage: 30 MILLIGRAM, 2X/DAY
     Route: 065
     Dates: start: 20200408, end: 20200605

REACTIONS (2)
  - Abortion induced [Unknown]
  - Exposure during pregnancy [Unknown]

NARRATIVE: CASE EVENT DATE: 20200508
